FAERS Safety Report 14398523 (Version 3)
Quarter: 2018Q2

REPORT INFORMATION
  Report Type: Spontaneous
  Country: JP (occurrence: JP)
  Receive Date: 20180116
  Receipt Date: 20180613
  Transmission Date: 20180711
  Serious: Yes (Other)
  Sender: FDA-Public Use
  Company Number: JP-TAKEDA-2017TJP020597

PATIENT
  Age: 45 Year
  Sex: Female

DRUGS (11)
  1. TAKECAB TABLETS 20MG [Suspect]
     Active Substance: VONOPRAZAN FUMURATE
     Indication: GASTRIC ULCER
     Dosage: 20 MG, QD
     Route: 048
  2. TAKECAB TABLETS 20MG [Suspect]
     Active Substance: VONOPRAZAN FUMURATE
     Dosage: UNK
     Route: 048
  3. BIOFERMIN                          /07746301/ [Concomitant]
     Dosage: 3 DF, QD
     Route: 048
  4. TAKEPRON CAPSULES 15 [Suspect]
     Active Substance: LANSOPRAZOLE
     Indication: PRODUCT USED FOR UNKNOWN INDICATION
     Dosage: 30 MG, UNK
     Route: 048
  5. FAMOTIDINE. [Concomitant]
     Active Substance: FAMOTIDINE
     Dosage: UNK
     Route: 065
  6. BIOFERMIN                          /07746301/ [Concomitant]
     Dosage: 1 DF, TID
     Route: 048
  7. GENTACIN [Concomitant]
     Active Substance: GENTAMICIN SULFATE
     Dosage: UNK
     Route: 065
  8. TOKISHAKUYAKUSAN                   /08000701/ [Concomitant]
     Active Substance: HERBALS
     Dosage: UNK
     Route: 048
  9. SANMEL [Suspect]
     Active Substance: SODIUM ALGINATE
     Indication: PRODUCT USED FOR UNKNOWN INDICATION
     Dosage: UNK
     Route: 048
  10. IMIGRAN                            /01044802/ [Concomitant]
     Active Substance: SUMATRIPTAN
     Dosage: UNK
     Route: 065
  11. SHAKUYAKUKANZOTO [Concomitant]
     Active Substance: HERBALS
     Dosage: UNK
     Route: 048

REACTIONS (14)
  - Drug ineffective [None]
  - Duodenal polyp [Unknown]
  - Drug ineffective [Unknown]
  - Weight decreased [Unknown]
  - Ovarian cancer [Unknown]
  - Gastritis [Recovered/Resolved]
  - Abdominal pain [Recovered/Resolved]
  - Treatment noncompliance [None]
  - Ascites [None]
  - Nausea [Recovered/Resolved]
  - Abdominal pain upper [None]
  - Faeces discoloured [Unknown]
  - Ovarian cyst [Unknown]
  - Chills [Unknown]
